FAERS Safety Report 8205930-0 (Version None)
Quarter: 2012Q1

REPORT INFORMATION
  Report Type: 
  Country: None (occurrence: None)
  Receive Date: 20120227
  Receipt Date: 20111206
  Transmission Date: 20120608
  Serious: No
  Sender: FDA-Public Use
  Company Number: 340899

PATIENT
  Sex: Female

DRUGS (1)
  1. VICTOZA [Suspect]
     Indication: PRODUCT USED FOR UNKNOWN INDICATION
     Dosage: 1.6 MG,, 1.2 MG QD, SUBCUTANEOUS
     Route: 058

REACTIONS (2)
  - NAUSEA [None]
  - BLOOD GLUCOSE DECREASED [None]
